FAERS Safety Report 4369328-8 (Version None)
Quarter: 2004Q2

REPORT INFORMATION
  Report Type: 
  Country: None (occurrence: None)
  Receive Date: 20040527
  Receipt Date: 20040517
  Transmission Date: 20050107
  Serious: Yes (Death)
  Sender: FDA-Public Use
  Company Number: US-JNJFOC-20040504029

PATIENT
  Age: 46 Year
  Sex: Female
  Weight: 68.4932 kg

DRUGS (4)
  1. REMICADE [Suspect]
     Indication: CROHN'S DISEASE
     Dosage: 5 MG, INTRAVENOUS
     Route: 042
     Dates: start: 20030730, end: 20040430
  2. HRT (ANROGENS AND FEMALE SEX HORMONES IN COMB) [Concomitant]
  3. MERCAPTOPURINE [Concomitant]
  4. ATENOLOL [Concomitant]

REACTIONS (3)
  - CEREBROVASCULAR ACCIDENT [None]
  - CORONARY ARTERY ANEURYSM [None]
  - INTRACARDIAC THROMBUS [None]
